FAERS Safety Report 5053621-X (Version None)
Quarter: 2006Q3

REPORT INFORMATION
  Report Type: 
  Country: None (occurrence: None)
  Receive Date: 20060718
  Receipt Date: 20050114
  Transmission Date: 20061208
  Serious: Yes (Death, Other)
  Sender: FDA-Public Use
  Company Number: PHNU2005DE00548

PATIENT
  Age: 62 Year
  Sex: Female
  Weight: 53 kg

DRUGS (8)
  1. MITOXANTRONE [Concomitant]
     Indication: BREAST CANCER METASTATIC
     Dosage: 19.7 MG, UNK
     Dates: start: 20030731, end: 20031222
  2. NAVELBINE [Concomitant]
     Indication: BREAST CANCER METASTATIC
     Dosage: 41 MG, UNK
     Dates: start: 20030731, end: 20031222
  3. MITOMYCIN [Concomitant]
     Indication: BREAST CANCER METASTATIC
     Dosage: 16 MG, UNK
     Route: 065
     Dates: start: 20040602, end: 20041012
  4. SOLU-DECORTIN-H [Concomitant]
     Indication: BREAST CANCER METASTATIC
     Dosage: 100 MG, UNK
     Dates: start: 20040602, end: 20041012
  5. XELODA [Concomitant]
     Dosage: 3000 MG, UNK
     Route: 048
     Dates: start: 20040602, end: 20041012
  6. FORTECORTIN [Concomitant]
     Dosage: 8 MG, UNK
     Dates: start: 20030731, end: 20031222
  7. AROMASIN [Concomitant]
     Dosage: 1 DF, QD
     Route: 048
     Dates: start: 20040123, end: 20040416
  8. ZOMETA [Suspect]
     Indication: METASTASES TO BONE
     Dosage: 4 MG, QMO
     Route: 042
     Dates: start: 20030718, end: 20050103

REACTIONS (6)
  - FISTULA [None]
  - LOCAL ANAESTHESIA [None]
  - MALIGNANT NEOPLASM PROGRESSION [None]
  - OSTEONECROSIS [None]
  - PURULENT DISCHARGE [None]
  - WOUND DEBRIDEMENT [None]
